FAERS Safety Report 8861875 (Version 1)
Quarter: 2012Q4

REPORT INFORMATION
  Report Type: 
  Country: US (occurrence: US)
  Receive Date: 20121025
  Receipt Date: 20121025
  Transmission Date: 20130627
  Serious: No
  Sender: FDA-Public Use
  Company Number: US-AMGEN-USASP2012023441

PATIENT
  Sex: Female
  Weight: 92.52 kg

DRUGS (13)
  1. ENBREL [Suspect]
     Indication: PRODUCT USED FOR UNKNOWN INDICATION
     Dosage: 50 mg, qwk
     Route: 058
  2. VENTOLIN HFA [Concomitant]
  3. TRAMADOL HCL [Concomitant]
     Dosage: 100 mg, UNK
  4. GABAPENTIN [Concomitant]
     Dosage: 100 mg, UNK
  5. JOLESSA [Concomitant]
  6. NOVOLOG [Concomitant]
     Dosage: 100 ml, UNK
  7. LANTUS [Concomitant]
     Dosage: 100 ml, UNK
  8. ZOLPIDEM TARTATE [Concomitant]
     Dosage: 6.25 mg, UNK
  9. OMEPRAZOLE [Concomitant]
     Dosage: 20 mg, UNK
  10. CALCIUM                            /00060701/ [Concomitant]
  11. MULTIVITAMIN                       /00097801/ [Concomitant]
  12. VITAMIN D /00107901/ [Concomitant]
     Dosage: 400 IU, UNK
  13. VITAMIN C                          /00008001/ [Concomitant]
     Dosage: 500 mg, UNK

REACTIONS (1)
  - Ear infection [Recovered/Resolved]
